FAERS Safety Report 11660121 (Version 2)
Quarter: 2015Q4

REPORT INFORMATION
  Report Type: Report from Study
  Country: CO (occurrence: CO)
  Receive Date: 20151026
  Receipt Date: 20151105
  Transmission Date: 20160304
  Serious: Yes (Hospitalization)
  Sender: FDA-Public Use
  Company Number: CO-ABBVIE-15K-036-1487914-00

PATIENT
  Age: 67 Year
  Sex: Female
  Weight: 64 kg

DRUGS (6)
  1. LOSARTAN. [Concomitant]
     Active Substance: LOSARTAN
     Indication: HYPERTENSION
  2. JANUMET [Concomitant]
     Active Substance: METFORMIN HYDROCHLORIDE\SITAGLIPTIN PHOSPHATE
     Indication: BLOOD GLUCOSE ABNORMAL
  3. HUMIRA [Suspect]
     Active Substance: ADALIMUMAB
     Indication: RHEUMATOID ARTHRITIS
     Route: 058
     Dates: start: 20140227, end: 20151007
  4. METHOTREXATE [Concomitant]
     Active Substance: METHOTREXATE
     Indication: RHEUMATOID ARTHRITIS
  5. STAFEN [Concomitant]
     Indication: DYSLIPIDAEMIA
  6. INSULIN [Concomitant]
     Active Substance: INSULIN NOS
     Indication: BLOOD GLUCOSE ABNORMAL

REACTIONS (3)
  - Hypoglycaemia [Recovering/Resolving]
  - Abdominal pain [Recovering/Resolving]
  - Gastrointestinal infection [Recovering/Resolving]

NARRATIVE: CASE EVENT DATE: 20151018
